FAERS Safety Report 13426672 (Version 1)
Quarter: 2017Q2

REPORT INFORMATION
  Report Type: Spontaneous
  Country: US (occurrence: US)
  Receive Date: 20170411
  Receipt Date: 20170411
  Transmission Date: 20170830
  Serious: No
  Sender: FDA-Public Use
  Company Number: US-ENDO PHARMACEUTICALS INC-2016-002156

PATIENT
  Age: 80 Year
  Sex: Female
  Weight: 56.3 kg

DRUGS (1)
  1. AMOXICILLIN CAPSULES 500 MG [Suspect]
     Active Substance: AMOXICILLIN
     Indication: PAIN
     Route: 048
     Dates: start: 20160112, end: 20160115

REACTIONS (12)
  - Vulvovaginal erythema [None]
  - Nausea [Recovering/Resolving]
  - Fungal infection [Recovering/Resolving]
  - Vulvovaginal burning sensation [None]
  - Urinary tract disorder [None]
  - Vulvovaginal pain [None]
  - Nervous system disorder [Unknown]
  - Abdominal pain upper [Recovering/Resolving]
  - Cystitis [Recovering/Resolving]
  - Off label use [Recovered/Resolved]
  - Dyspepsia [None]
  - Vulvovaginal discomfort [None]

NARRATIVE: CASE EVENT DATE: 201601
